FAERS Safety Report 8523919-9 (Version None)
Quarter: 2012Q3

REPORT INFORMATION
  Report Type: 
  Country: None (occurrence: None)
  Receive Date: 20120720
  Receipt Date: 20120710
  Transmission Date: 20120928
  Serious: Yes (Other)
  Sender: FDA-Public Use
  Company Number: CA-BRISTOL-MYERS SQUIBB COMPANY-16542144

PATIENT
  Age: 73 Year
  Sex: Female

DRUGS (6)
  1. PREDNISONE [Concomitant]
  2. ORENCIA [Suspect]
     Indication: RHEUMATOID ARTHRITIS
     Dosage: NO OF INF: 19,LAST INFUSION 18APR12,10JUL2012
     Route: 042
     Dates: start: 20110127
  3. HYDROMORPHONE HCL [Concomitant]
  4. NEXIUM [Concomitant]
  5. ZOPICLONE [Concomitant]
  6. ACTONEL [Concomitant]

REACTIONS (5)
  - NAUSEA [None]
  - EPIGASTRIC DISCOMFORT [None]
  - LACERATION [None]
  - ATRIAL FIBRILLATION [None]
  - OEDEMA PERIPHERAL [None]
